FAERS Safety Report 13510719 (Version 2)
Quarter: 2017Q2

REPORT INFORMATION
  Report Type: Spontaneous
  Country: JP (occurrence: JP)
  Receive Date: 20170503
  Receipt Date: 20170522
  Transmission Date: 20170830
  Serious: Yes (Other)
  Sender: FDA-Public Use
  Company Number: JP-SA-2017SA078766

PATIENT
  Age: 78 Year
  Sex: Male

DRUGS (8)
  1. CAMSHIA [Suspect]
     Active Substance: AMLODIPINE BESYLATE\CANDESARTAN CILEXETIL
     Route: 065
     Dates: start: 20101004
  2. CRESTOR [Suspect]
     Active Substance: ROSUVASTATIN CALCIUM
     Route: 065
     Dates: start: 20101004
  3. CANDESARTAN. [Suspect]
     Active Substance: CANDESARTAN
     Route: 065
     Dates: start: 20101004
  4. ALLOPURINOL. [Suspect]
     Active Substance: ALLOPURINOL
     Route: 065
     Dates: start: 20101004
  5. LUNESTA [Suspect]
     Active Substance: ESZOPICLONE
     Route: 065
     Dates: start: 20101004
  6. MAGNESIUM OXIDE. [Suspect]
     Active Substance: MAGNESIUM OXIDE
     Route: 065
     Dates: start: 20101004
  7. TENELIA [Suspect]
     Active Substance: TENELIGLIPTIN
     Route: 065
     Dates: start: 20101004
  8. FEXOFENADINE HYDROCHLORIDE SANIK [Suspect]
     Active Substance: FEXOFENADINE HYDROCHLORIDE
     Route: 048
     Dates: start: 201701

REACTIONS (2)
  - Renal impairment [Unknown]
  - Creatinine renal clearance increased [Unknown]
